FAERS Safety Report 18266466 (Version 2)
Quarter: 2020Q4

REPORT INFORMATION
  Report Type: Spontaneous
  Country: US (occurrence: US)
  Receive Date: 20200915
  Receipt Date: 20201013
  Transmission Date: 20210113
  Serious: No
  Sender: FDA-Public Use
  Company Number: US-SHIRE-US202029881

PATIENT
  Sex: Female
  Weight: 29.93 kg

DRUGS (8)
  1. GATTEX [Suspect]
     Active Substance: TEDUGLUTIDE\WATER
     Indication: SHORT-BOWEL SYNDROME
     Dosage: 0.264 MILLILITER, 1X/DAY:QD
     Route: 058
  2. GATTEX [Suspect]
     Active Substance: TEDUGLUTIDE\WATER
     Dosage: 0.2640 UNK, 1X/DAY:QD
     Route: 058
     Dates: start: 20190923
  3. GATTEX [Suspect]
     Active Substance: TEDUGLUTIDE\WATER
     Dosage: 0.2640 UNK, 1X/DAY:QD
     Route: 058
     Dates: start: 20190923
  4. GATTEX [Suspect]
     Active Substance: TEDUGLUTIDE\WATER
     Indication: SHORT-BOWEL SYNDROME
     Dosage: 0.264 MILLILITER, 1X/DAY:QD
     Route: 058
  5. GATTEX [Suspect]
     Active Substance: TEDUGLUTIDE\WATER
     Indication: SHORT-BOWEL SYNDROME
     Dosage: 0.264 MILLILITER, 1X/DAY:QD
     Route: 058
  6. GATTEX [Suspect]
     Active Substance: TEDUGLUTIDE\WATER
     Indication: SHORT-BOWEL SYNDROME
     Dosage: 0.264 MILLILITER, 1X/DAY:QD
     Route: 058
  7. GATTEX [Suspect]
     Active Substance: TEDUGLUTIDE\WATER
     Dosage: 0.2640 UNK, 1X/DAY:QD
     Route: 058
     Dates: start: 20190923
  8. GATTEX [Suspect]
     Active Substance: TEDUGLUTIDE\WATER
     Dosage: 0.2640 UNK, 1X/DAY:QD
     Route: 058
     Dates: start: 20190923

REACTIONS (1)
  - Obstruction [Recovered/Resolved]
